FAERS Safety Report 14114000 (Version 1)
Quarter: 2017Q4

REPORT INFORMATION
  Report Type: Spontaneous
  Country: BR (occurrence: BR)
  Receive Date: 20171023
  Receipt Date: 20171023
  Transmission Date: 20180321
  Serious: Yes (Hospitalization, Other)
  Sender: FDA-Public Use
  Company Number: BR-TORRENT-00004198

PATIENT
  Age: 51 Year
  Sex: Female
  Weight: 52 kg

DRUGS (7)
  1. QUETIAPINE FUMARATE. [Concomitant]
     Active Substance: QUETIAPINE FUMARATE
  2. LAMOTRIGINE. [Suspect]
     Active Substance: LAMOTRIGINE
  3. MENELAT [Suspect]
     Active Substance: MIRTAZAPINE
  4. RIVOTRIL [Suspect]
     Active Substance: CLONAZEPAM
  5. LEVOTHYROXINE SODIUM. [Concomitant]
     Active Substance: LEVOTHYROXINE SODIUM
  6. ESCITALOPRAM OXALATE. [Concomitant]
     Active Substance: ESCITALOPRAM OXALATE
  7. ZOLPIDEM TARTRATE. [Suspect]
     Active Substance: ZOLPIDEM TARTRATE

REACTIONS (14)
  - Hypertension [Not Recovered/Not Resolved]
  - Suicide attempt [Unknown]
  - Hypoaesthesia [Not Recovered/Not Resolved]
  - Faeces discoloured [Recovered/Resolved]
  - Vomiting [Unknown]
  - Gait disturbance [Unknown]
  - Pain [Unknown]
  - Overdose [Unknown]
  - Back pain [Unknown]
  - Feeling abnormal [Unknown]
  - Tremor [Unknown]
  - Loss of consciousness [Recovered/Resolved]
  - Erythema [Not Recovered/Not Resolved]
  - Dyspnoea [Unknown]

NARRATIVE: CASE EVENT DATE: 201709
